FAERS Safety Report 5946077-3 (Version None)
Quarter: 2008Q4

REPORT INFORMATION
  Report Type: 
  Country: None (occurrence: None)
  Receive Date: 20081110
  Receipt Date: 20081104
  Transmission Date: 20090506
  Serious: Yes (Death)
  Sender: FDA-Public Use
  Company Number: US-ROCHE-595043

PATIENT
  Age: 84 Year
  Sex: Female

DRUGS (2)
  1. BONIVA [Suspect]
     Indication: DRUG USE FOR UNKNOWN INDICATION
     Dosage: PATIENT TOOK DRUG FOR 2-3 YEARS
     Route: 065
  2. CHEMOTHERAPY [Concomitant]
     Route: 042

REACTIONS (1)
  - BREAST CANCER [None]
